FAERS Safety Report 17967776 (Version 1)
Quarter: 2020Q2

REPORT INFORMATION
  Report Type: Spontaneous
  Country: US (occurrence: US)
  Receive Date: 20200630
  Receipt Date: 20200630
  Transmission Date: 20200714
  Serious: Yes (Hospitalization)
  Sender: FDA-Public Use
  Company Number: None

PATIENT
  Age: 36 Year
  Sex: Male
  Weight: 77 kg

DRUGS (2)
  1. TACROLIMUS. [Suspect]
     Active Substance: TACROLIMUS
     Indication: RENAL TRANSPLANT
     Route: 048
     Dates: start: 20200506, end: 20200507
  2. TACROLIMUS. [Suspect]
     Active Substance: TACROLIMUS
     Indication: RENAL TRANSPLANT
     Route: 048
     Dates: start: 20200505, end: 20200505

REACTIONS (10)
  - Atypical haemolytic uraemic syndrome [None]
  - Microangiopathy [None]
  - Immunosuppression [None]
  - Glomerulonephritis rapidly progressive [None]
  - Thrombotic microangiopathy [None]
  - Anaemia [None]
  - End stage renal disease [None]
  - Haemolytic uraemic syndrome [None]
  - Thrombocytopenia [None]
  - Blood lactate dehydrogenase increased [None]

NARRATIVE: CASE EVENT DATE: 20200508
